FAERS Safety Report 23006308 (Version 2)
Quarter: 2023Q4

REPORT INFORMATION
  Report Type: Report from Study
  Country: CO (occurrence: CO)
  Receive Date: 20230929
  Receipt Date: 20231030
  Transmission Date: 20240110
  Serious: Yes (Life-Threatening, Hospitalization, Other)
  Sender: FDA-Public Use
  Company Number: CO-ABBVIE-5427769

PATIENT
  Age: 53 Year
  Sex: Male

DRUGS (1)
  1. ZEMPLAR [Suspect]
     Active Substance: PARICALCITOL
     Indication: Chronic kidney disease
     Dosage: FORM STRENGTH: 5 MICROGRAM
     Route: 042
     Dates: start: 20220617, end: 20230922

REACTIONS (12)
  - Fatigue [Unknown]
  - Chest pain [Unknown]
  - Muscle spasms [Unknown]
  - Laboratory test abnormal [Unknown]
  - Infarction [Recovering/Resolving]
  - Choking sensation [Not Recovered/Not Resolved]
  - Nipple pain [Not Recovered/Not Resolved]
  - Paraesthesia [Not Recovered/Not Resolved]
  - Asthenia [Not Recovered/Not Resolved]
  - Insomnia [Not Recovered/Not Resolved]
  - Asphyxia [Not Recovered/Not Resolved]
  - Pain [Not Recovered/Not Resolved]

NARRATIVE: CASE EVENT DATE: 20230801
